FAERS Safety Report 9364907 (Version 2)
Quarter: 2013Q3

REPORT INFORMATION
  Report Type: Spontaneous
  Country: AU (occurrence: AU)
  Receive Date: 20130624
  Receipt Date: 20130710
  Transmission Date: 20140515
  Serious: Yes (Life-Threatening)
  Sender: FDA-Public Use
  Company Number: AU-VIIV HEALTHCARE LIMITED-B0902249A

PATIENT
  Age: 49 Year
  Sex: Male

DRUGS (6)
  1. ABACAVIR SULFATE + LAMIVUDINE [Suspect]
     Indication: HIV INFECTION
     Route: 065
  2. RITONAVIR [Suspect]
     Indication: HIV INFECTION
     Route: 065
  3. VALACYCLOVIR [Suspect]
     Indication: HIV INFECTION
     Route: 065
  4. ATAZANAVIR [Suspect]
     Indication: HIV INFECTION
     Route: 065
  5. ALPRAZOLAM [Suspect]
     Indication: HIV INFECTION
     Route: 065
  6. VALPROATE [Suspect]
     Indication: HIV INFECTION
     Route: 065

REACTIONS (1)
  - Metastatic malignant melanoma [Not Recovered/Not Resolved]
